FAERS Safety Report 4357041-2 (Version None)
Quarter: 2004Q2

REPORT INFORMATION
  Report Type: 
  Country: None (occurrence: None)
  Receive Date: 20040512
  Receipt Date: 20040322
  Transmission Date: 20050107
  Serious: Yes (Death)
  Sender: FDA-Public Use
  Company Number: UG-GLAXOSMITHKLINE-B0327635A

PATIENT
  Age: 1 Day
  Sex: Male
  Weight: 1 kg

DRUGS (2)
  1. ALBENDAZOLE [Suspect]
     Indication: HELMINTHIC INFECTION
     Dosage: 400MG SINGLE DOSE
     Dates: start: 20030730
  2. FANSIDAR [Concomitant]
     Indication: MALARIA PROPHYLAXIS
     Dates: start: 20030714

REACTIONS (5)
  - APNOEA [None]
  - DRUG EXPOSURE DURING PREGNANCY [None]
  - POLYHYDRAMNIOS [None]
  - PREMATURE BABY [None]
  - RESPIRATORY DISTRESS [None]
